FAERS Safety Report 21452085 (Version 1)
Quarter: 2022Q4

REPORT INFORMATION
  Report Type: Spontaneous
  Country: US (occurrence: None)
  Receive Date: 20221012
  Receipt Date: 20221012
  Transmission Date: 20230112
  Serious: Yes (Other)
  Sender: FDA-Public Use
  Company Number: None

PATIENT
  Age: 62 Year
  Sex: Male
  Weight: 74.25 kg

DRUGS (10)
  1. LOSARTAN [Suspect]
     Active Substance: LOSARTAN
     Indication: Cardiac disorder
     Dosage: OTHER QUANTITY : 1 TABLET(S);?FREQUENCY : DAILY;?
     Route: 048
     Dates: start: 20221012
  2. JARDIANCE [Concomitant]
     Active Substance: EMPAGLIFLOZIN
  3. METOPROLOL [Concomitant]
     Active Substance: METOPROLOL
  4. XARELTO [Concomitant]
     Active Substance: RIVAROXABAN
  5. DIGOXIN [Concomitant]
     Active Substance: DIGOXIN
  6. FUROSEMIDE [Concomitant]
     Active Substance: FUROSEMIDE
  7. ATORVASTATIN [Concomitant]
     Active Substance: ATORVASTATIN
  8. Nicotine patch [Concomitant]
  9. OMEPRAZOLE [Concomitant]
     Active Substance: OMEPRAZOLE
  10. VITAMINS [Concomitant]
     Active Substance: VITAMINS

REACTIONS (2)
  - Incorrect dose administered [None]
  - Product prescribing issue [None]

NARRATIVE: CASE EVENT DATE: 20221012
